FAERS Safety Report 5672507-0 (Version None)
Quarter: 2008Q1

REPORT INFORMATION
  Report Type: 
  Country: None (occurrence: None)
  Receive Date: 20080319
  Receipt Date: 20080317
  Transmission Date: 20080703
  Serious: Yes (Other)
  Sender: FDA-Public Use
  Company Number: US-GENENTECH-256606

PATIENT
  Sex: Female
  Weight: 63.492 kg

DRUGS (27)
  1. ACTIVASE [Suspect]
     Indication: ISCHAEMIC STROKE
     Dosage: 5 MG, SINGLE
     Route: 040
     Dates: start: 20080221, end: 20080221
  2. ACTIVASE [Suspect]
     Dosage: 48 MG, SINGLE
     Route: 041
     Dates: start: 20080221, end: 20080221
  3. ANGIOTENSIN CONVERTING ENZYME INHIBITOR NOS [Concomitant]
     Indication: DRUG USE FOR UNKNOWN INDICATION
  4. PREMARIN [Concomitant]
     Indication: DRUG USE FOR UNKNOWN INDICATION
     Dosage: 1 G, QOD
     Route: 067
  5. DIGOXIN [Concomitant]
     Indication: DRUG USE FOR UNKNOWN INDICATION
     Dosage: 125 A?G, Q3D
     Route: 048
  6. ACETAMINOPHEN [Concomitant]
     Indication: DRUG USE FOR UNKNOWN INDICATION
     Dosage: 1000 MG, QHS
     Route: 048
  7. ACTOS [Concomitant]
     Indication: DRUG USE FOR UNKNOWN INDICATION
     Dosage: 15 MG, QD
     Route: 048
  8. ALLOPURINOL [Concomitant]
     Indication: DRUG USE FOR UNKNOWN INDICATION
     Dosage: 100 MG, QD
     Route: 048
  9. ARISTOCORT A [Concomitant]
     Indication: DERMATITIS CONTACT
     Dosage: UNK, BID
     Route: 061
  10. FUROSEMIDE [Concomitant]
     Indication: DRUG USE FOR UNKNOWN INDICATION
     Dosage: 20 MG, BID
  11. SYNTHROID [Concomitant]
     Indication: DRUG USE FOR UNKNOWN INDICATION
     Dosage: 50 A?G, QD
     Route: 048
  12. OCUVITE [Concomitant]
     Indication: DRUG USE FOR UNKNOWN INDICATION
     Dosage: UNK TABLET, BID
  13. PROTONIX [Concomitant]
     Indication: DRUG USE FOR UNKNOWN INDICATION
     Dosage: 40 MG, QD
     Route: 048
  14. ZESTRIL [Concomitant]
     Indication: BLOOD PRESSURE
     Dosage: 10 MG, QD
     Route: 048
  15. CELEBREX [Concomitant]
     Indication: DRUG USE FOR UNKNOWN INDICATION
     Dosage: 200 MG, QD
  16. MONISTAT [Concomitant]
     Indication: DRUG USE FOR UNKNOWN INDICATION
     Dosage: UNK, QHS
     Route: 067
  17. METROGEL [Concomitant]
     Indication: DRUG USE FOR UNKNOWN INDICATION
     Dosage: UNK, BID
     Route: 061
  18. VITAMIN C COUGH DROPS [Concomitant]
     Indication: DRUG USE FOR UNKNOWN INDICATION
     Dosage: UNK TABLET, PRN
  19. LACTAID (UNITED STATES) [Concomitant]
     Indication: DRUG USE FOR UNKNOWN INDICATION
     Dosage: 3000 UNIT, PRN
  20. CITRUCEL [Concomitant]
     Indication: DRUG USE FOR UNKNOWN INDICATION
     Dosage: 1 SCOOP, BID
  21. ASPERCREME [Concomitant]
     Indication: OSTEOARTHRITIS
     Dosage: UNK, PRN
     Route: 061
  22. VAGISIL CREAM [Concomitant]
     Indication: VAGINAL INFECTION
     Dosage: UNK, PRN
     Route: 061
  23. TYLENOL W/ CODEINE [Concomitant]
     Indication: PAIN
     Dosage: UNK, Q6H
  24. BENADRYL [Concomitant]
     Indication: PRURITUS
     Dosage: 25 MG, Q4H
  25. ZOFRAN [Concomitant]
     Indication: NAUSEA
     Dosage: 4 MG, Q6H
  26. IMODIUM [Concomitant]
     Indication: DIARRHOEA
     Dosage: 2 MG, TID
  27. KENALOG [Concomitant]
     Indication: DRUG USE FOR UNKNOWN INDICATION
     Dosage: UNK, TID
     Route: 061

REACTIONS (1)
  - ANGIOEDEMA [None]
